FAERS Safety Report 6130653-1 (Version None)
Quarter: 2009Q1

REPORT INFORMATION
  Report Type: 
  Country: None (occurrence: None)
  Receive Date: 20090323
  Receipt Date: 20090305
  Transmission Date: 20090719
  Serious: Yes (Hospitalization)
  Sender: FDA-Public Use
  Company Number: 8041590

PATIENT
  Age: 30 Year
  Sex: Female
  Weight: 60 kg

DRUGS (5)
  1. KEPPRA [Suspect]
     Dosage: 2000 MG, D
     Dates: start: 20081127, end: 20090216
  2. PERENTEROL [Concomitant]
  3. VALPROATE SODIUM [Concomitant]
  4. CLEXANE [Concomitant]
  5. MUTAFLOR [Concomitant]

REACTIONS (12)
  - ACNE [None]
  - AGITATION [None]
  - ALOPECIA [None]
  - GASTROINTESTINAL DISORDER [None]
  - HEART RATE INCREASED [None]
  - HYPERHIDROSIS [None]
  - MASTICATION DISORDER [None]
  - POLYURIA [None]
  - RASH PUSTULAR [None]
  - SALIVARY HYPERSECRETION [None]
  - SLEEP DISORDER [None]
  - URINARY TRACT INFECTION [None]
